FAERS Safety Report 17740452 (Version 1)
Quarter: 2020Q2

REPORT INFORMATION
  Report Type: Spontaneous
  Country: US (occurrence: US)
  Receive Date: 20200504
  Receipt Date: 20200504
  Transmission Date: 20200714
  Serious: Yes (Hospitalization, Disabling)
  Sender: FDA-Public Use
  Company Number: None

PATIENT
  Age: 54 Year
  Sex: Male
  Weight: 85.5 kg

DRUGS (7)
  1. XIFAXAN [Suspect]
     Active Substance: RIFAXIMIN
  2. PHENERGAN [Concomitant]
     Active Substance: PROMETHAZINE HYDROCHLORIDE
  3. CARAFATE [Concomitant]
     Active Substance: SUCRALFATE
  4. VITAMIN B12 [Concomitant]
     Active Substance: CYANOCOBALAMIN
  5. ZENPEP [Suspect]
     Active Substance: PANCRELIPASE AMYLASE\PANCRELIPASE LIPASE\PANCRELIPASE PROTEASE
     Indication: PRODUCT USED FOR UNKNOWN INDICATION
     Dosage: ?          OTHER STRENGTH:126000P,168000A;QUANTITY:1 CAPSULE(S);?
     Route: 048
     Dates: start: 20200113, end: 20200127
  6. FDGARD [Concomitant]
  7. VITAMIN D [Concomitant]
     Active Substance: VITAMIN D NOS

REACTIONS (9)
  - Cough [None]
  - Headache [None]
  - Urinary tract infection [None]
  - Dizziness [None]
  - Glossodynia [None]
  - Nausea [None]
  - Abdominal pain upper [None]
  - Constipation [None]
  - Helicobacter infection [None]

NARRATIVE: CASE EVENT DATE: 20200128
